FAERS Safety Report 23232685 (Version 2)
Quarter: 2023Q4

REPORT INFORMATION
  Report Type: Report from Study
  Country: CA (occurrence: CA)
  Receive Date: 20231128
  Receipt Date: 20231130
  Transmission Date: 20240110
  Serious: Yes (Other)
  Sender: FDA-Public Use
  Company Number: CA-JNJFOC-20230817596

PATIENT
  Age: 59 Year
  Sex: Female
  Weight: 65 kg

DRUGS (2)
  1. REMICADE [Suspect]
     Active Substance: INFLIXIMAB
     Indication: Crohn^s disease
     Route: 041
  2. AMOXICILLIN\CLAVULANIC ACID [Suspect]
     Active Substance: AMOXICILLIN\CLAVULANIC ACID
     Indication: Pneumonia
     Route: 065
     Dates: end: 20231120

REACTIONS (9)
  - Pneumonia [Recovering/Resolving]
  - Bronchitis [Recovering/Resolving]
  - Fungal infection [Not Recovered/Not Resolved]
  - Viral infection [Unknown]
  - Nasopharyngitis [Recovered/Resolved]
  - Hypoaesthesia [Not Recovered/Not Resolved]
  - Frequent bowel movements [Unknown]
  - Diarrhoea [Not Recovered/Not Resolved]
  - Fatigue [Unknown]

NARRATIVE: CASE EVENT DATE: 20230101
